FAERS Safety Report 5382495-2 (Version None)
Quarter: 2007Q3

REPORT INFORMATION
  Report Type: 
  Country: None (occurrence: None)
  Receive Date: 20070703
  Receipt Date: 20060905
  Transmission Date: 20080115
  Serious: Yes (Life-Threatening)
  Sender: FDA-Public Use
  Company Number: US-JNJFOC-20060604695

PATIENT
  Age: 67 Year
  Sex: Female
  Weight: 95.2554 kg

DRUGS (8)
  1. MOTRIN IB [Suspect]
     Indication: BACK PAIN
     Dosage: 400 MG, 2-3 TIMES DAILY, 200 MG, 1 IN 1 TOTAL; ORAL
     Route: 048
     Dates: start: 20060501, end: 20060501
  2. MOTRIN IB [Suspect]
     Indication: TOOTHACHE
     Dosage: 400 MG, 2-3 TIMES DAILY, 200 MG, 1 IN 1 TOTAL; ORAL
     Route: 048
     Dates: start: 20060501, end: 20060501
  3. MOTRIN IB [Suspect]
     Indication: BACK PAIN
     Dosage: 400 MG, 2-3 TIMES DAILY, 200 MG, 1 IN 1 TOTAL; ORAL
     Route: 048
     Dates: start: 20060615, end: 20060615
  4. MOTRIN IB [Suspect]
     Indication: TOOTHACHE
     Dosage: 400 MG, 2-3 TIMES DAILY, 200 MG, 1 IN 1 TOTAL; ORAL
     Route: 048
     Dates: start: 20060615, end: 20060615
  5. GLUCOVANCE [Concomitant]
  6. DIOVAN [Concomitant]
  7. MULTIVITAMIN [Concomitant]
  8. BABY ASPIRIN (ASPIRIN) UNKNOWN [Concomitant]

REACTIONS (1)
  - HYPERSENSITIVITY [None]
